FAERS Safety Report 8608558-3 (Version None)
Quarter: 2012Q3

REPORT INFORMATION
  Report Type: 
  Country: None (occurrence: None)
  Receive Date: 20120821
  Receipt Date: 20120815
  Transmission Date: 20120928
  Serious: Yes (Hospitalization)
  Sender: FDA-Public Use
  Company Number: CO-PFIZER INC-2012118189

PATIENT
  Age: 11 Year
  Sex: Female

DRUGS (5)
  1. GENOTROPIN [Suspect]
     Indication: GROWTH HORMONE DEFICIENCY
     Dosage: 1.2 IU, EVERY 24 HOURS
     Route: 058
     Dates: start: 20100301
  2. CALCIUM [Concomitant]
     Indication: PROPHYLAXIS
     Dosage: 600 MG, EVERY 12 HOURS
     Route: 048
     Dates: start: 20040101
  3. PREDNISOLONE [Concomitant]
     Indication: SARCOIDOSIS
     Dosage: 7.5 MG, EVERY 24 HOURS
     Dates: start: 20040101
  4. FOLIC ACID [Concomitant]
     Indication: PROPHYLAXIS
     Dosage: 3 MG, EVERY 24 HOURS
     Route: 048
     Dates: start: 20040401
  5. CALCITRIOL [Concomitant]
     Indication: PROPHYLAXIS
     Dosage: 0.25 MG, EVERY 24 HOURS
     Route: 048
     Dates: start: 20040101

REACTIONS (2)
  - CONDITION AGGRAVATED [None]
  - PULMONARY SARCOIDOSIS [None]
